FAERS Safety Report 15296313 (Version 1)
Quarter: 2018Q3

REPORT INFORMATION
  Report Type: Spontaneous
  Country: US (occurrence: US)
  Receive Date: 20180806
  Receipt Date: 20180806
  Transmission Date: 20181010
  Serious: Yes (Other)
  Sender: FDA-Public Use
  Company Number: None

PATIENT
  Age: 31 Year
  Sex: Female
  Weight: 85.28 kg

DRUGS (3)
  1. GADAVIST [Suspect]
     Active Substance: GADOBUTROL
     Indication: PAIN
     Route: 042
     Dates: start: 20180611, end: 20180611
  2. GADAVIST [Suspect]
     Active Substance: GADOBUTROL
     Indication: HEADACHE
     Route: 042
     Dates: start: 20180611, end: 20180611
  3. GADAVIST [Suspect]
     Active Substance: GADOBUTROL
     Indication: DIZZINESS
     Route: 042
     Dates: start: 20180611, end: 20180611

REACTIONS (2)
  - Pruritus [None]
  - Contrast media reaction [None]
